FAERS Safety Report 19190550 (Version 1)
Quarter: 2021Q2

REPORT INFORMATION
  Report Type: Spontaneous
  Country: GB (occurrence: GB)
  Receive Date: 20210428
  Receipt Date: 20210428
  Transmission Date: 20210717
  Serious: Yes (Other)
  Sender: FDA-Public Use
  Company Number: GB-MYLANLABS-2021M1024685

PATIENT
  Age: 48 Year
  Sex: Female
  Weight: 117 kg

DRUGS (11)
  1. DESOGESTREL [Concomitant]
     Active Substance: DESOGESTREL
     Indication: ILL-DEFINED DISORDER
     Dosage: ONE TO BE TAKEN DAILY
     Dates: start: 20200501
  2. MIRENA [Concomitant]
     Active Substance: LEVONORGESTREL
     Indication: ILL-DEFINED DISORDER
     Dosage: USE AS DIRECTED EVERY 5 YEARS
     Dates: start: 20200211, end: 20210215
  3. SERTRALINE [Concomitant]
     Active Substance: SERTRALINE HYDROCHLORIDE
     Indication: ILL-DEFINED DISORDER
     Dosage: TWO DAILY
     Dates: start: 20200116
  4. FEXOFENADINE [Concomitant]
     Active Substance: FEXOFENADINE HYDROCHLORIDE
     Indication: ILL-DEFINED DISORDER
     Dosage: ONE TO BE TAKEN DAILY
     Dates: start: 20200116
  5. DOXYCYCLINE. [Suspect]
     Active Substance: DOXYCYCLINE
     Indication: PRODUCT USED FOR UNKNOWN INDICATION
     Dosage: 100 MILLIGRAM
     Dates: start: 20210421
  6. NORMACOL [Concomitant]
     Active Substance: HERBALS\KARAYA GUM
     Indication: ILL-DEFINED DISORDER
     Dosage: 1 TO 2 TEASPOONS PER DAY, AS DIRECTED BY OBESIT
     Dates: start: 20200116
  7. OMEPRAZOLE. [Concomitant]
     Active Substance: OMEPRAZOLE
     Indication: ILL-DEFINED DISORDER
     Dosage: TWO TO BE TAKEN ONCE DAILY
     Dates: start: 20200116
  8. PARACETAMOL [Concomitant]
     Active Substance: ACETAMINOPHEN
     Indication: ILL-DEFINED DISORDER
     Dosage: TWO TABLETS FOUR TIMES A DAY FOR PAIN IF REQUIRED
     Dates: start: 20200116
  9. SOLIFENACIN [Concomitant]
     Active Substance: SOLIFENACIN
     Indication: ILL-DEFINED DISORDER
     Dosage: TAKE ONE DAILY AS DIRECTED BY UROGYNAECOLOGY
     Dates: start: 20200116
  10. TETRACYCLINE [Concomitant]
     Active Substance: TETRACYCLINE
     Indication: ILL-DEFINED DISORDER
     Dosage: TAKE TWO TWICE DAILY
     Dates: start: 20200116
  11. TRAMADOL. [Concomitant]
     Active Substance: TRAMADOL
     Indication: ILL-DEFINED DISORDER
     Dosage: TAKE 1 OR 2 AS DIRECTED UP TO FOUR TIMES A DAY
     Dates: start: 20210215, end: 20210227

REACTIONS (1)
  - Lip swelling [Recovered/Resolved]

NARRATIVE: CASE EVENT DATE: 20210421
